FAERS Safety Report 9551970 (Version 1)
Quarter: 2013Q3

REPORT INFORMATION
  Report Type: Spontaneous
  Country: TW (occurrence: TW)
  Receive Date: 20130925
  Receipt Date: 20130925
  Transmission Date: 20140515
  Serious: Yes (Death, Other)
  Sender: FDA-Public Use
  Company Number: TW-BAYER-2013-112647

PATIENT
  Age: 45 Year
  Sex: Male

DRUGS (7)
  1. MOXIFLOXACIN IV [Suspect]
     Indication: SERRATIA INFECTION
     Dosage: 0.4 G/D
     Route: 042
     Dates: start: 2009, end: 2009
  2. MOXIFLOXACIN IV [Suspect]
     Indication: STENOTROPHOMONAS INFECTION
     Dosage: UNK
     Route: 042
     Dates: start: 2009, end: 2009
  3. MOXIFLOXACIN IV [Suspect]
     Indication: MENINGITIS BACTERIAL
  4. SULFAMETHOXAZOLE W/TRIMETHOPRIM [Concomitant]
     Indication: STENOTROPHOMONAS INFECTION
     Dosage: 3.6/0.72 G/D
     Route: 048
     Dates: start: 2009, end: 2009
  5. SULFAMETHOXAZOLE W/TRIMETHOPRIM [Concomitant]
     Indication: MENINGITIS BACTERIAL
     Dosage: 1.6/0.32 G/D
     Dates: start: 2009, end: 2009
  6. TIGECYCLINE [Concomitant]
     Indication: STENOTROPHOMONAS INFECTION
     Dosage: 1 G/D
     Route: 042
     Dates: start: 2009, end: 2009
  7. TIGECYCLINE [Concomitant]
     Indication: MENINGITIS BACTERIAL

REACTIONS (4)
  - Meningitis candida [None]
  - Stenotrophomonas infection [Fatal]
  - Meningitis bacterial [Fatal]
  - Pathogen resistance [Fatal]
